FAERS Safety Report 8614196 (Version 2)
Quarter: 2012Q4

REPORT INFORMATION
  Report Type: 
  Country: US (occurrence: US)
  Receive Date: 20120614
  Receipt Date: 20120910
  Transmission Date: 20130627
  Serious: Yes (Hospitalization)
  Sender: FDA-Public Use
  Company Number: US-BRISTOL-MYERS SQUIBB COMPANY-16663486

PATIENT
  Age: 63 Year
  Sex: Male

DRUGS (1)
  1. YERVOY [Suspect]
     Dates: start: 20120531

REACTIONS (1)
  - Haemoglobin decreased [Unknown]
